FAERS Safety Report 9796134 (Version 1)
Quarter: 2014Q1

REPORT INFORMATION
  Report Type: Spontaneous
  Country: US (occurrence: US)
  Receive Date: 20140103
  Receipt Date: 20140103
  Transmission Date: 20141002
  Serious: No
  Sender: FDA-Public Use
  Company Number: US-BAXTER-2013BAX052852

PATIENT
  Sex: Female

DRUGS (4)
  1. DIANEAL LOW CALCIUM [Suspect]
     Indication: PERITONEAL DIALYSIS
     Route: 033
     Dates: start: 201011
  2. DIANEAL LOW CALCIUM [Suspect]
     Indication: RENAL FAILURE CHRONIC
  3. EXTRANEAL [Suspect]
     Indication: PERITONEAL DIALYSIS
     Route: 033
     Dates: start: 201310, end: 20131121
  4. EXTRANEAL [Suspect]
     Indication: RENAL FAILURE CHRONIC

REACTIONS (3)
  - Rash pruritic [Recovered/Resolved]
  - Skin exfoliation [Recovered/Resolved]
  - Rash generalised [Recovered/Resolved]
